FAERS Safety Report 24681684 (Version 2)
Quarter: 2025Q1

REPORT INFORMATION
  Report Type: Spontaneous
  Country: US (occurrence: US)
  Receive Date: 20241130
  Receipt Date: 20250129
  Transmission Date: 20250409
  Serious: No
  Sender: SANOFI AVENTIS
  Company Number: US-SA-2024SA348041

PATIENT
  Sex: Male

DRUGS (3)
  1. DUPIXENT [Suspect]
     Active Substance: DUPILUMAB
     Indication: Dermatitis atopic
     Dosage: 300 MG, QOW
     Route: 058
     Dates: start: 202204
  2. DUPIXENT [Suspect]
     Active Substance: DUPILUMAB
     Indication: Psoriasis
  3. VELSIPITY [Concomitant]
     Active Substance: ETRASIMOD ARGININE

REACTIONS (4)
  - Chest pain [Unknown]
  - Palpitations [Unknown]
  - Chest discomfort [Recovered/Resolved]
  - Product use in unapproved indication [Unknown]
